FAERS Safety Report 5053992-4 (Version None)
Quarter: 2006Q3

REPORT INFORMATION
  Report Type: 
  Country: None (occurrence: None)
  Receive Date: 20060713
  Receipt Date: 20060706
  Transmission Date: 20061208
  Serious: Yes (Other)
  Sender: FDA-Public Use
  Company Number: 2006-07-0143

PATIENT
  Age: 60 Year
  Sex: Female

DRUGS (2)
  1. RINDERON OPHTHALMIC SOLUTION [Suspect]
     Indication: CONJUNCTIVAL ULCER
     Dosage: 0.1% EYE
     Dates: start: 20040101, end: 20050101
  2. CICLOSPORIN OPHTHALMIC SOLUTION [Suspect]
     Indication: CONJUNCTIVAL ULCER
     Dosage: EYE
     Dates: start: 20040101, end: 20050101

REACTIONS (3)
  - DRUG INEFFECTIVE [None]
  - KERATOPATHY [None]
  - SQUAMOUS CELL CARCINOMA [None]
